FAERS Safety Report 7464669-X (Version None)
Quarter: 2011Q2

REPORT INFORMATION
  Report Type: 
  Country: None (occurrence: None)
  Receive Date: 20110509
  Receipt Date: 20110106
  Transmission Date: 20111010
  Serious: Yes (Hospitalization, Other)
  Sender: FDA-Public Use
  Company Number: US-BAYER-201021942NA

PATIENT
  Age: 25 Year
  Sex: Female
  Weight: 63.492 kg

DRUGS (15)
  1. YASMIN [Suspect]
     Indication: ACNE
  2. YAZ [Suspect]
     Indication: ACNE
  3. WARFARIN SODIUM [Concomitant]
  4. YAZ [Suspect]
     Indication: MENSTRUAL CYCLE MANAGEMENT
  5. DARVOCET [Concomitant]
  6. YASMIN [Suspect]
     Indication: MENSTRUAL CYCLE MANAGEMENT
  7. YAZ [Suspect]
     Indication: CONTRACEPTION
     Dosage: UNK
     Route: 048
     Dates: start: 20080324, end: 20080401
  8. YAZ [Suspect]
     Indication: DYSMENORRHOEA
  9. YASMIN [Suspect]
     Indication: CONTRACEPTION
     Dosage: UNK
     Route: 048
     Dates: start: 20060601, end: 20080301
  10. YASMIN [Suspect]
     Indication: MOOD SWINGS
  11. ACETAMINOPHEN AND HYDROCODONE BITARTRATE [Concomitant]
  12. INDOMETHACIN [Concomitant]
  13. YAZ [Suspect]
     Indication: MOOD SWINGS
  14. YASMIN [Suspect]
     Indication: DYSMENORRHOEA
  15. AZITHROMYCIN [Concomitant]

REACTIONS (9)
  - CHOLECYSTITIS [None]
  - GALLBLADDER DISORDER [None]
  - PAIN IN EXTREMITY [None]
  - ANXIETY [None]
  - DEEP VEIN THROMBOSIS [None]
  - OEDEMA PERIPHERAL [None]
  - PULMONARY EMBOLISM [None]
  - POST THROMBOTIC SYNDROME [None]
  - DEPRESSION [None]
